FAERS Safety Report 15370799 (Version 2)
Quarter: 2018Q4

REPORT INFORMATION
  Report Type: Report from Study
  Country: CN (occurrence: CN)
  Receive Date: 20180911
  Receipt Date: 20181004
  Transmission Date: 20190204
  Serious: Yes (Hospitalization, Other)
  Sender: FDA-Public Use
  Company Number: CN-BAYER-2018-165707

PATIENT
  Age: 60 Year
  Sex: Male

DRUGS (1)
  1. STIVARGA [Suspect]
     Active Substance: REGORAFENIB
     Indication: COLORECTAL CANCER
     Dosage: 120 MG, QD
     Route: 048
     Dates: start: 20180710, end: 2018

REACTIONS (6)
  - Marasmus [Not Recovered/Not Resolved]
  - Palmar-plantar erythrodysaesthesia syndrome [Recovering/Resolving]
  - Colorectal cancer [Not Recovered/Not Resolved]
  - Off label use [None]
  - Decreased appetite [Not Recovered/Not Resolved]
  - Carcinoembryonic antigen increased [None]

NARRATIVE: CASE EVENT DATE: 2018
